FAERS Safety Report 12052099 (Version 1)
Quarter: 2016Q1

REPORT INFORMATION
  Report Type: Spontaneous
  Country: None (occurrence: None)
  Receive Date: 20160208
  Receipt Date: 20160208
  Transmission Date: 20160526
  Serious: No
  Sender: FDA-Public Use
  Company Number: None

PATIENT
  Age: 77 Year
  Sex: Female
  Weight: 44.45 kg

DRUGS (1)
  1. HYDROXYCHLOROQUINE 200 MG [Suspect]
     Active Substance: HYDROXYCHLOROQUINE
     Dates: start: 20150828, end: 20160115

REACTIONS (6)
  - Dry mouth [None]
  - Vision blurred [None]
  - Dry eye [None]
  - Deafness [None]
  - Dysphonia [None]
  - Muscular weakness [None]
